FAERS Safety Report 5277675-0 (Version None)
Quarter: 2007Q1

REPORT INFORMATION
  Report Type: 
  Country: None (occurrence: None)
  Receive Date: 20070327
  Receipt Date: 20070315
  Transmission Date: 20070707
  Serious: Yes (Hospitalization, Other)
  Sender: FDA-Public Use
  Company Number: US-PFIZER INC-2005103512

PATIENT
  Sex: Male

DRUGS (12)
  1. NEURONTIN [Suspect]
     Indication: PAIN
     Dosage: DAILY DOSE:600MG
  2. EFFEXOR [Concomitant]
  3. ULTRAM [Concomitant]
  4. KLONOPIN [Concomitant]
  5. HEPARIN [Concomitant]
  6. TRAZODONE HCL [Concomitant]
  7. ULTRACEF [Concomitant]
  8. RELAFEN [Concomitant]
  9. ZANAFLEX [Concomitant]
  10. SUDAFED 12 HOUR [Concomitant]
  11. VICODIN [Concomitant]
  12. RITALIN [Concomitant]
     Indication: ATTENTION DEFICIT/HYPERACTIVITY DISORDER

REACTIONS (10)
  - ANXIETY [None]
  - DIARRHOEA [None]
  - DRUG INEFFECTIVE [None]
  - FACIAL BONES FRACTURE [None]
  - MAJOR DEPRESSION [None]
  - MUSCLE SPASMS [None]
  - OSTEONECROSIS [None]
  - SUICIDAL IDEATION [None]
  - SUICIDE ATTEMPT [None]
  - TOOTH LOSS [None]
